FAERS Safety Report 14080515 (Version 1)
Quarter: 2017Q4

REPORT INFORMATION
  Report Type: Spontaneous
  Country: US (occurrence: US)
  Receive Date: 20171012
  Receipt Date: 20171012
  Transmission Date: 20180321
  Serious: No
  Sender: FDA-Public Use
  Company Number: US-MYLANLABS-2017M1035701

PATIENT
  Age: 69 Year
  Sex: Female

DRUGS (2)
  1. EMSAM [Suspect]
     Active Substance: SELEGILINE
     Indication: ANXIETY
     Dosage: 9 MG, QD
     Route: 062
  2. EMSAM [Suspect]
     Active Substance: SELEGILINE
     Indication: DEPRESSION
     Dosage: 6 MG, QD

REACTIONS (8)
  - Sleep disorder [Recovering/Resolving]
  - Depression [Unknown]
  - Muscular weakness [Unknown]
  - Hypoaesthesia [Unknown]
  - Drug administration error [Unknown]
  - Application site inflammation [Unknown]
  - Myalgia [Unknown]
  - Tremor [Unknown]
